FAERS Safety Report 20988158 (Version 4)
Quarter: 2023Q2

REPORT INFORMATION
  Report Type: Report from Study
  Country: US (occurrence: US)
  Receive Date: 20220621
  Receipt Date: 20230425
  Transmission Date: 20230722
  Serious: Yes (Hospitalization)
  Sender: FDA-Public Use
  Company Number: US-OTSUKA-2022_028258AA

PATIENT
  Age: 80 Year
  Sex: Female
  Weight: 73.8 kg

DRUGS (5)
  1. CEDAZURIDINE\DECITABINE [Suspect]
     Active Substance: CEDAZURIDINE\DECITABINE
     Indication: Chronic lymphocytic leukaemia
     Dosage: 1 DF, QD (DAYS 1-3) EVERY 28-DAY CYCLE
     Route: 048
     Dates: start: 20211123
  2. CEDAZURIDINE\DECITABINE [Suspect]
     Active Substance: CEDAZURIDINE\DECITABINE
     Dosage: (MONDAY AND TUESDAY ONCE A MONTH)
     Route: 048
  3. CEDAZURIDINE\DECITABINE [Suspect]
     Active Substance: CEDAZURIDINE\DECITABINE
     Dosage: 1 DF (35 MG DECITABINE AND 100 MG CEDAZURIDINE), QD (ON DAYS 1-2 OF EACH 28- DAYS CYCLE)
     Route: 048
  4. VENCLEXTA [Concomitant]
     Active Substance: VENETOCLAX
     Indication: Product used for unknown indication
     Dosage: UNK
     Route: 065
  5. VENCLEXTA [Concomitant]
     Active Substance: VENETOCLAX
     Dosage: 2 DF, QD
     Route: 065

REACTIONS (9)
  - Cardiac failure congestive [Recovered/Resolved]
  - Transfusion [Unknown]
  - Carotid endarterectomy [Unknown]
  - Hypervolaemia [Unknown]
  - Influenza [Unknown]
  - Seroma [Unknown]
  - COVID-19 [Unknown]
  - Product use in unapproved indication [Unknown]
  - Product use issue [Unknown]

NARRATIVE: CASE EVENT DATE: 20211123
